FAERS Safety Report 18607811 (Version 1)
Quarter: 2020Q4

REPORT INFORMATION
  Report Type: Spontaneous
  Country: US (occurrence: US)
  Receive Date: 20201212
  Receipt Date: 20201212
  Transmission Date: 20210114
  Serious: Yes (Life-Threatening, Hospitalization, Other)
  Sender: FDA-Public Use
  Company Number: US-DRREDDYS-USA/USA/20/0129934

PATIENT
  Age: 77 Year
  Sex: Male

DRUGS (8)
  1. DOXORUBICIN HYDROCHLORIDE LIPOSOME INJECTION 20 MG/10 ML (2 MG/ML) AND [Suspect]
     Active Substance: DOXORUBICIN HYDROCHLORIDE
     Dosage: FIRST TACE SESSION (CONSISTING OF A 2:1 MIXTURE CONTAINING 20ML ETHIODIZED OIL AND 10ML AQUEOUS CHEM
  2. CEFAZOLIN [Concomitant]
     Active Substance: CEFAZOLIN
     Indication: PRODUCT USED FOR UNKNOWN INDICATION
     Route: 042
  3. METRONIDAZOL [Concomitant]
     Active Substance: METRONIDAZOLE
     Indication: PRODUCT USED FOR UNKNOWN INDICATION
     Route: 042
  4. DOXORUBICIN HYDROCHLORIDE LIPOSOME INJECTION 20 MG/10 ML (2 MG/ML) AND [Suspect]
     Active Substance: DOXORUBICIN HYDROCHLORIDE
     Indication: HEPATOCELLULAR CARCINOMA
     Dosage: 3 WEEKS LATER FOR A SECOND TACE TREATMENT (CONSISTING OF A 2:1 MIXTURE CONTAINING 20ML ETHIODIZED OI
  5. MITOMYCIN C [Suspect]
     Active Substance: MITOMYCIN
     Indication: HEPATOCELLULAR CARCINOMA
     Dosage: FIRST TACE SESSION (CONSISTING OF A 2:1 MIXTURE CONTAINING 20ML ETHIODIZED OIL AND 10ML AQUEOUS CHEM
  6. MITOMYCIN C [Suspect]
     Active Substance: MITOMYCIN
     Dosage: 3 WEEKS LATER FOR A SECOND TACE TREATMENT (CONSISTING OF A 2:1 MIXTURE CONTAINING 20ML ETHIODIZED OI
  7. DEXAMETHASONE 10 MG, ONDANSETRON 16 MG [Concomitant]
     Indication: PRODUCT USED FOR UNKNOWN INDICATION
  8. DIPHENHYDRAMINE. [Concomitant]
     Active Substance: DIPHENHYDRAMINE
     Indication: PRODUCT USED FOR UNKNOWN INDICATION
     Route: 042

REACTIONS (5)
  - Tachypnoea [Recovered/Resolved]
  - Hypersensitivity [Recovered/Resolved]
  - Hypoxia [Recovered/Resolved]
  - Chills [Recovered/Resolved]
  - Hypertension [Recovered/Resolved]
